FAERS Safety Report 9281874 (Version 1)
Quarter: 2013Q2

REPORT INFORMATION
  Report Type: Report from Study
  Country: AU (occurrence: AU)
  Receive Date: 20130510
  Receipt Date: 20130510
  Transmission Date: 20140414
  Serious: Yes (Other)
  Sender: FDA-Public Use
  Company Number: AU-ROCHE-1221342

PATIENT
  Sex: Female

DRUGS (2)
  1. ACTEMRA [Suspect]
     Indication: RHEUMATOID ARTHRITIS
     Route: 042
     Dates: start: 20130308
  2. WARFARIN [Concomitant]
     Indication: CORONARY ARTERIAL STENT INSERTION
     Dosage: 2ND INDICATION AF
     Route: 048
     Dates: start: 2011

REACTIONS (2)
  - Blister [Unknown]
  - Lung infection [Unknown]
